FAERS Safety Report 20770927 (Version 1)
Quarter: 2022Q2

REPORT INFORMATION
  Report Type: Spontaneous
  Country: US (occurrence: US)
  Receive Date: 20220429
  Receipt Date: 20220429
  Transmission Date: 20220721
  Serious: No
  Sender: FDA-Public Use
  Company Number: US-BAYER-2022A062487

PATIENT
  Age: 69 Year
  Sex: Female

DRUGS (5)
  1. CLARITIN [Suspect]
     Active Substance: LORATADINE
     Indication: Hypersensitivity
     Dosage: CHEW 1 OF THE TABLETS ONCE A DAY
     Route: 048
     Dates: start: 20220428
  2. CLARITIN [Suspect]
     Active Substance: LORATADINE
     Indication: Nasopharyngitis
  3. CLARITIN [Suspect]
     Active Substance: LORATADINE
     Indication: Sneezing
  4. CLARITIN [Suspect]
     Active Substance: LORATADINE
     Indication: Eye pruritus
  5. CLARITIN [Suspect]
     Active Substance: LORATADINE
     Indication: Lacrimation increased

REACTIONS (1)
  - Dizziness [None]

NARRATIVE: CASE EVENT DATE: 20220428
